FAERS Safety Report 14352232 (Version 3)
Quarter: 2018Q1

REPORT INFORMATION
  Report Type: Report from Study
  Country: US (occurrence: US)
  Receive Date: 20180104
  Receipt Date: 20180124
  Transmission Date: 20180509
  Serious: Yes (Other)
  Sender: FDA-Public Use
  Company Number: US-JAZZ-2017-US-017451

PATIENT
  Sex: Female

DRUGS (5)
  1. XYREM [Suspect]
     Active Substance: SODIUM OXYBATE
     Dosage: 4.5 G, BID
     Route: 048
     Dates: start: 201712
  2. XYREM [Suspect]
     Active Substance: SODIUM OXYBATE
     Dosage: DOSE ADJUSTMENT
     Route: 048
     Dates: start: 201711, end: 201712
  3. PROVIGIL [Suspect]
     Active Substance: MODAFINIL
     Dosage: 100MG
     Route: 048
  4. XYREM [Suspect]
     Active Substance: SODIUM OXYBATE
     Indication: NARCOLEPSY
     Dosage: 2.25 G, BID
     Route: 048
     Dates: start: 201711, end: 201711
  5. PROVIGIL [Suspect]
     Active Substance: MODAFINIL
     Indication: PRODUCT USED FOR UNKNOWN INDICATION
     Dosage: UNK
     Route: 048

REACTIONS (11)
  - Snoring [Unknown]
  - Dizziness [Unknown]
  - Tremor [Unknown]
  - Heart rate increased [Unknown]
  - Unevaluable event [Unknown]
  - Dyskinesia [Unknown]
  - Nausea [Unknown]
  - Vomiting [Unknown]
  - Muscle twitching [Unknown]
  - Restless legs syndrome [Unknown]
  - Feeling drunk [Unknown]

NARRATIVE: CASE EVENT DATE: 2017
